FAERS Safety Report 7672673-1 (Version None)
Quarter: 2011Q3

REPORT INFORMATION
  Report Type: 
  Country: None (occurrence: None)
  Receive Date: 20110809
  Receipt Date: 20110726
  Transmission Date: 20111222
  Serious: No
  Sender: FDA-Public Use
  Company Number: US-ROXANE LABORATORIES, INC.-2011-RO-01064RO

PATIENT
  Age: 62 Year
  Sex: Male

DRUGS (5)
  1. SIMVASTATIN [Concomitant]
  2. TERBINAFINE HCL [Concomitant]
  3. ATENOLOL [Concomitant]
  4. LISINOPRIL AND HYDROCHLOROTHIAZIDE [Concomitant]
  5. ZOLPIDEM [Suspect]
     Indication: INSOMNIA

REACTIONS (3)
  - VOMITING [None]
  - AMNESIA [None]
  - GAIT DISTURBANCE [None]
